FAERS Safety Report 5383860-X (Version None)
Quarter: 2007Q3

REPORT INFORMATION
  Report Type: 
  Country: None (occurrence: None)
  Receive Date: 20070706
  Receipt Date: 20070625
  Transmission Date: 20080115
  Serious: Yes (Hospitalization, Disabling)
  Sender: FDA-Public Use
  Company Number: 163-21880-07061359

PATIENT
  Age: 77 Year
  Sex: Male

DRUGS (1)
  1. REVLIMID [Suspect]
     Indication: MYELODYSPLASTIC SYNDROME
     Dosage: 10 MG, 1 IN 1 D; ORAL
     Route: 048
     Dates: start: 20070607, end: 20070620

REACTIONS (7)
  - CERVICAL VERTEBRAL FRACTURE [None]
  - FACIAL BONES FRACTURE [None]
  - FALL [None]
  - FEEDING DISORDER [None]
  - PHARYNGEAL INJURY [None]
  - RESPIRATORY ARREST [None]
  - STAPHYLOCOCCAL INFECTION [None]
